FAERS Safety Report 13889405 (Version 1)
Quarter: 2017Q3

REPORT INFORMATION
  Report Type: Spontaneous
  Country: FR (occurrence: FR)
  Receive Date: 20170822
  Receipt Date: 20170822
  Transmission Date: 20171127
  Serious: Yes (Other)
  Sender: FDA-Public Use
  Company Number: FR-BRISTOL-MYERS SQUIBB COMPANY-BMS-2017-072798

PATIENT
  Age: 86 Year
  Sex: Female

DRUGS (2)
  1. KARDEGIC [Suspect]
     Active Substance: ASPIRIN LYSINE
     Indication: CEREBROVASCULAR ACCIDENT
     Dosage: 1 DF, QD
     Route: 048
  2. COUMADINE [Suspect]
     Active Substance: WARFARIN SODIUM
     Indication: CEREBROVASCULAR ACCIDENT
     Dosage: 3 MG, QD
     Route: 048

REACTIONS (4)
  - Muscle haemorrhage [Recovered/Resolved]
  - Acute kidney injury [Unknown]
  - Anaemia [Unknown]
  - Fall [Unknown]

NARRATIVE: CASE EVENT DATE: 20150424
